FAERS Safety Report 8348041-6 (Version None)
Quarter: 2012Q2

REPORT INFORMATION
  Report Type: 
  Country: None (occurrence: None)
  Receive Date: 20120509
  Receipt Date: 20120508
  Transmission Date: 20120825
  Serious: Yes (Other)
  Sender: FDA-Public Use
  Company Number: US-PFIZER INC-2012112459

PATIENT
  Sex: Female

DRUGS (2)
  1. CHANTIX [Suspect]
     Indication: SMOKING CESSATION THERAPY
     Dosage: 0.5 MG, 1X/DAY
     Route: 048
     Dates: start: 20111201, end: 20120501
  2. CHANTIX [Suspect]
     Dosage: UNK
     Route: 048
     Dates: start: 20120501

REACTIONS (4)
  - MANIA [None]
  - ANGER [None]
  - MIGRAINE [None]
  - ANXIETY [None]
